FAERS Safety Report 6810454-9 (Version None)
Quarter: 2010Q2

REPORT INFORMATION
  Report Type: 
  Country: None (occurrence: None)
  Receive Date: 20100630
  Receipt Date: 20100623
  Transmission Date: 20101027
  Serious: Yes (Hospitalization, Other)
  Sender: FDA-Public Use
  Company Number: CR-ABBOTT-10P-039-0653240-00

PATIENT
  Age: 45 Year
  Sex: Female

DRUGS (3)
  1. HUMIRA [Suspect]
     Indication: RHEUMATOID ARTHRITIS
     Route: 058
     Dates: start: 20090116, end: 20100601
  2. METHOTREXATE [Concomitant]
     Indication: RHEUMATOID ARTHRITIS
     Dates: start: 20090116
  3. SULFASALAZINE [Concomitant]
     Indication: CROHN'S DISEASE
     Dates: start: 20090101

REACTIONS (6)
  - ABDOMINAL PAIN [None]
  - BRUCELLOSIS [None]
  - CROHN'S DISEASE [None]
  - INTESTINAL FISTULA [None]
  - PYREXIA [None]
  - SEPSIS [None]
